FAERS Safety Report 19963244 (Version 1)
Quarter: 2021Q4

REPORT INFORMATION
  Report Type: Spontaneous
  Country: US (occurrence: US)
  Receive Date: 20211016
  Receipt Date: 20211016
  Transmission Date: 20220303
  Serious: No
  Sender: FDA-Public Use
  Company Number: None

PATIENT
  Age: 70 Year
  Sex: Male
  Weight: 78.75 kg

DRUGS (7)
  1. CARBIDOPA\LEVODOPA [Suspect]
     Active Substance: CARBIDOPA\LEVODOPA
     Indication: Parkinson^s disease
     Dosage: ?          QUANTITY:2 CAPSULE(S);
     Route: 048
  2. NEXIUM [Concomitant]
     Active Substance: ESOMEPRAZOLE MAGNESIUM
  3. ROPINIROLE [Concomitant]
     Active Substance: ROPINIROLE
  4. LOSARTAN POTASSIUM [Concomitant]
     Active Substance: LOSARTAN POTASSIUM
  5. AMITIZA [Concomitant]
     Active Substance: LUBIPROSTONE
  6. ATORVASTATIN CALCIUM [Concomitant]
     Active Substance: ATORVASTATIN CALCIUM
  7. LEXAPRO [Concomitant]
     Active Substance: ESCITALOPRAM OXALATE

REACTIONS (7)
  - Dizziness [None]
  - Drug ineffective [None]
  - Gastrooesophageal reflux disease [None]
  - Cough [None]
  - Musculoskeletal stiffness [None]
  - Balance disorder [None]
  - Manufacturing materials issue [None]

NARRATIVE: CASE EVENT DATE: 20211015
